FAERS Safety Report 5167511-5 (Version None)
Quarter: 2006Q4

REPORT INFORMATION
  Report Type: 
  Country: None (occurrence: None)
  Receive Date: 20060830
  Receipt Date: 20060424
  Transmission Date: 20070319
  Serious: No
  Sender: FDA-Public Use
  Company Number: 223483

PATIENT
  Age: 56 Year
  Sex: Female

DRUGS (4)
  1. XOLAIR [Suspect]
     Dosage: 300 MG, Q4W, SUBCUTANEOUS
     Route: 058
     Dates: start: 20030807
  2. ARTHROTEC [Concomitant]
  3. LIPITOR [Concomitant]
  4. INSULIN [Concomitant]

REACTIONS (4)
  - DYSPNOEA [None]
  - PAIN [None]
  - SPUTUM DISCOLOURED [None]
  - WHEEZING [None]
